FAERS Safety Report 20891677 (Version 4)
Quarter: 2024Q2

REPORT INFORMATION
  Report Type: Spontaneous
  Country: US (occurrence: US)
  Receive Date: 20220530
  Receipt Date: 20240606
  Transmission Date: 20240716
  Serious: Yes (Other)
  Sender: FDA-Public Use
  Company Number: US-BRISTOL-MYERS SQUIBB COMPANY-2022-049261

PATIENT
  Age: 57 Year
  Sex: Male

DRUGS (2)
  1. REVLIMID [Suspect]
     Active Substance: LENALIDOMIDE
     Indication: Plasma cell myeloma
     Dosage: FREQUENCY DAILY QD FOR 21 DAYS AND 7 DAYS OFF
     Route: 048
     Dates: start: 202103
  2. REVLIMID [Suspect]
     Active Substance: LENALIDOMIDE
     Indication: Plasma cell myeloma
     Route: 048

REACTIONS (5)
  - Blood bilirubin increased [Unknown]
  - Guillain-Barre syndrome [Unknown]
  - Fracture [Unknown]
  - Full blood count decreased [Unknown]
  - Infection [Unknown]

NARRATIVE: CASE EVENT DATE: 20220125
